FAERS Safety Report 16023753 (Version 1)
Quarter: 2019Q1

REPORT INFORMATION
  Report Type: Report from Study
  Country: US (occurrence: US)
  Receive Date: 20190301
  Receipt Date: 20190301
  Transmission Date: 20190418
  Serious: Yes (Other)
  Sender: FDA-Public Use
  Company Number: US-TAIHO ONCOLOGY  INC-EU-2018-02375

PATIENT
  Sex: Male
  Weight: 83.08 kg

DRUGS (4)
  1. LONSURF [Suspect]
     Active Substance: TIPIRACIL HYDROCHLORIDE\TRIFLURIDINE
     Indication: COLON CANCER
  2. LONSURF [Suspect]
     Active Substance: TIPIRACIL HYDROCHLORIDE\TRIFLURIDINE
     Indication: RECTAL CANCER
     Dosage: CURRENT CYCLE 3 STARTED ON 07JAN2019
     Route: 048
     Dates: start: 20181107
  3. ASPIRIN. [Concomitant]
     Active Substance: ASPIRIN
     Dosage: NI
  4. ENTRESTO [Concomitant]
     Active Substance: SACUBITRIL\VALSARTAN
     Dosage: NI

REACTIONS (8)
  - Alopecia [Not Recovered/Not Resolved]
  - Cytopenia [Unknown]
  - Rash [Recovered/Resolved]
  - Disease progression [Not Recovered/Not Resolved]
  - Fatigue [Not Recovered/Not Resolved]
  - Transfusion [Not Recovered/Not Resolved]
  - Constipation [Not Recovered/Not Resolved]
  - White blood cell count decreased [Not Recovered/Not Resolved]

NARRATIVE: CASE EVENT DATE: 2018
